FAERS Safety Report 10404333 (Version 1)
Quarter: 2014Q1

REPORT INFORMATION
  Report Type: Spontaneous
  Country: US (occurrence: None)
  Receive Date: 20140214
  Receipt Date: 20140214
  Transmission Date: 20141002
  Serious: No
  Sender: FDA-Public Use
  Company Number: A-NJ2014-93871

PATIENT
  Age: 79 Year
  Sex: Female

DRUGS (2)
  1. OPSUMIT (MACITENTAN) [Suspect]
     Indication: CARDIAC DISORDER
     Route: 048
     Dates: start: 20140110
  2. TYVASO (TREPROSTINIL SODIUM) [Concomitant]

REACTIONS (1)
  - Nausea [None]
